FAERS Safety Report 25540583 (Version 1)
Quarter: 2025Q3

REPORT INFORMATION
  Report Type: Spontaneous
  Country: US (occurrence: None)
  Receive Date: 20250710
  Receipt Date: 20250710
  Transmission Date: 20251021
  Serious: Yes (Disabling)
  Sender: FDA-CTU
  Company Number: None

PATIENT
  Age: 57 Year
  Sex: Female
  Weight: 60.75 kg

DRUGS (3)
  1. LEXAPRO [Suspect]
     Active Substance: ESCITALOPRAM OXALATE
     Indication: Stress
  2. LEXAPRO [Suspect]
     Active Substance: ESCITALOPRAM OXALATE
     Indication: Anxiety
  3. LIQUID ESCITALOPRAM .23 MG [Concomitant]

REACTIONS (16)
  - Drug withdrawal syndrome [None]
  - Decreased appetite [None]
  - Insomnia [None]
  - Tremor [None]
  - Pruritus [None]
  - Tinnitus [None]
  - Paranoia [None]
  - Anxiety [None]
  - Anxiety [None]
  - Depression [None]
  - Akathisia [None]
  - Anhedonia [None]
  - Impaired work ability [None]
  - Impaired quality of life [None]
  - Antisocial behaviour [None]
  - Central nervous system inflammation [None]
